FAERS Safety Report 6094351-5 (Version None)
Quarter: 2009Q1

REPORT INFORMATION
  Report Type: 
  Country: None (occurrence: None)
  Receive Date: 20090219
  Receipt Date: 20081106
  Transmission Date: 20090719
  Serious: No
  Sender: FDA-Public Use
  Company Number: WAES 0811USA00956

PATIENT
  Age: 71 Year
  Sex: Male

DRUGS (2)
  1. JANUVIA [Suspect]
     Indication: DIABETES MELLITUS
     Dosage: PO
     Route: 048
     Dates: start: 20081102
  2. INFLUENZA VIRUS VACCINE [Concomitant]

REACTIONS (3)
  - FATIGUE [None]
  - MALAISE [None]
  - WRONG TECHNIQUE IN DRUG USAGE PROCESS [None]
